FAERS Safety Report 11724110 (Version 2)
Quarter: 2016Q3

REPORT INFORMATION
  Report Type: Spontaneous
  Country: US (occurrence: US)
  Receive Date: 20151111
  Receipt Date: 20160804
  Transmission Date: 20161109
  Serious: No
  Sender: FDA-Public Use
  Company Number: US-NEPHRON PHARMACEUTICALS CORPORATION-1044076

PATIENT
  Age: 90 Year
  Sex: Female
  Weight: 71.36 kg

DRUGS (1)
  1. ALBUTEROL SULFATE INHALATION SOLUTION, 0.042% [Suspect]
     Active Substance: ALBUTEROL SULFATE
     Indication: UPPER RESPIRATORY TRACT INFECTION
     Route: 055
     Dates: start: 20151020, end: 20151020

REACTIONS (1)
  - Dizziness [Recovered/Resolved]

NARRATIVE: CASE EVENT DATE: 20151020
